FAERS Safety Report 11512779 (Version 1)
Quarter: 2015Q3

REPORT INFORMATION
  Report Type: Spontaneous
  Country: US (occurrence: US)
  Receive Date: 20150903
  Receipt Date: 20150903
  Transmission Date: 20151125
  Serious: No
  Sender: FDA-Public Use
  Company Number: US-ELI_LILLY_AND_COMPANY-US201004000540

PATIENT
  Sex: Female

DRUGS (6)
  1. HUMALOG MIX75/25 [Suspect]
     Active Substance: INSULIN LISPRO
     Dosage: 50 U, 2/D
     Dates: start: 200810
  2. ZOCOR [Concomitant]
     Active Substance: SIMVASTATIN
  3. COZAAR [Concomitant]
     Active Substance: LOSARTAN POTASSIUM
  4. HUMALOG MIX75/25 [Suspect]
     Active Substance: INSULIN LISPRO
     Indication: DIABETES MELLITUS
     Dosage: 50 U, 2/D
     Dates: start: 200810
  5. HUMALOG MIX75/25 [Suspect]
     Active Substance: INSULIN LISPRO
     Dosage: 50 U, 2/D
     Dates: start: 200810
  6. SYNTHROID [Concomitant]
     Active Substance: LEVOTHYROXINE SODIUM

REACTIONS (2)
  - Nervous system disorder [Not Recovered/Not Resolved]
  - Excessive eye blinking [Not Recovered/Not Resolved]

NARRATIVE: CASE EVENT DATE: 200810
